FAERS Safety Report 13148203 (Version 1)
Quarter: 2017Q1

REPORT INFORMATION
  Report Type: Spontaneous
  Country: GB (occurrence: GB)
  Receive Date: 20170125
  Receipt Date: 20170125
  Transmission Date: 20170428
  Serious: Yes (Other)
  Sender: FDA-Public Use
  Company Number: GB-ASTRAZENECA-2017SE07855

PATIENT
  Age: 52 Year
  Sex: Female
  Weight: 65 kg

DRUGS (3)
  1. METFORMIN [Concomitant]
     Active Substance: METFORMIN HYDROCHLORIDE
     Dosage: SLOW RELEASE.
  2. DAPAGLIFLOZIN [Suspect]
     Active Substance: DAPAGLIFLOZIN
     Indication: TYPE 2 DIABETES MELLITUS
     Dosage: 10.0MG UNKNOWN
     Route: 048
     Dates: start: 20161221
  3. NOVOMIX [Concomitant]
     Active Substance: INSULIN ASPART

REACTIONS (3)
  - Coronary artery occlusion [Unknown]
  - Acute myocardial infarction [Recovered/Resolved with Sequelae]
  - Left ventricular dysfunction [Unknown]

NARRATIVE: CASE EVENT DATE: 20161230
